FAERS Safety Report 5705860-X (Version None)
Quarter: 2008Q2

REPORT INFORMATION
  Report Type: 
  Country: None (occurrence: None)
  Receive Date: 20080415
  Receipt Date: 20080407
  Transmission Date: 20081010
  Serious: Yes (Hospitalization)
  Sender: FDA-Public Use
  Company Number: JP-MERCK-0803USA04807

PATIENT
  Age: 65 Year
  Sex: Male

DRUGS (6)
  1. HYZAAR [Suspect]
     Indication: HYPERTENSION
     Route: 048
     Dates: start: 20080229, end: 20080318
  2. ASPIRIN [Concomitant]
     Route: 048
     Dates: start: 20060401
  3. ALLOPURINOL [Concomitant]
     Route: 048
     Dates: start: 20060401
  4. NORVASC [Concomitant]
     Route: 048
  5. ISOSORBIDE MONONITRATE [Concomitant]
     Route: 048
     Dates: start: 20060401
  6. PRAVASTATIN SODIUM [Concomitant]
     Route: 048
     Dates: start: 20060401

REACTIONS (3)
  - ANOREXIA [None]
  - INAPPROPRIATE ANTIDIURETIC HORMONE SECRETION [None]
  - SYNCOPE [None]
